FAERS Safety Report 13945022 (Version 1)
Quarter: 2017Q3

REPORT INFORMATION
  Report Type: Spontaneous
  Country: CO (occurrence: CO)
  Receive Date: 20170907
  Receipt Date: 20170907
  Transmission Date: 20171128
  Serious: Yes (Death)
  Sender: FDA-Public Use
  Company Number: CO-BAXTER-2017BAX031697

PATIENT
  Age: 60 Year
  Sex: Male
  Weight: 74 kg

DRUGS (2)
  1. DIANEAL PD-2 WITH DEXTROSE [Suspect]
     Active Substance: CALCIUM CHLORIDE\DEXTROSE\MAGNESIUM CHLORIDE\SODIUM CHLORIDE\SODIUM LACTATE
     Indication: PERITONEAL DIALYSIS
  2. DIANEAL PD-2 WITH DEXTROSE [Suspect]
     Active Substance: CALCIUM CHLORIDE\DEXTROSE\MAGNESIUM CHLORIDE\SODIUM CHLORIDE\SODIUM LACTATE
     Indication: CHRONIC KIDNEY DISEASE
     Route: 033
     Dates: end: 20170902

REACTIONS (1)
  - Acute myocardial infarction [Fatal]

NARRATIVE: CASE EVENT DATE: 20170902
